FAERS Safety Report 24108525 (Version 1)
Quarter: 2024Q3

REPORT INFORMATION
  Report Type: Spontaneous
  Country: TW (occurrence: TW)
  Receive Date: 20240718
  Receipt Date: 20240718
  Transmission Date: 20241016
  Serious: Yes (Death, Other)
  Sender: AMGEN
  Company Number: TW-AMGEN-TWNSP2024136945

PATIENT
  Age: 56 Year
  Sex: Male

DRUGS (18)
  1. BEVACIZUMAB [Suspect]
     Active Substance: BEVACIZUMAB
     Indication: Non-small cell lung cancer stage II
     Dosage: UNK
     Route: 065
  2. BEVACIZUMAB [Suspect]
     Active Substance: BEVACIZUMAB
     Indication: EGFR gene mutation
     Dosage: UNK
     Route: 065
     Dates: start: 202207
  3. OSIMERTINIB [Suspect]
     Active Substance: OSIMERTINIB
     Indication: Non-small cell lung cancer stage II
     Dosage: UNK
     Route: 065
  4. OSIMERTINIB [Suspect]
     Active Substance: OSIMERTINIB
     Indication: EGFR gene mutation
     Dosage: UNK
     Route: 065
     Dates: start: 202206
  5. AFATINIB [Concomitant]
     Active Substance: AFATINIB
     Indication: Non-small cell lung cancer stage II
     Dosage: UNK
     Route: 065
     Dates: start: 202203
  6. AFATINIB [Concomitant]
     Active Substance: AFATINIB
     Indication: EGFR gene mutation
     Dosage: 30 MILLIGRAM
     Route: 065
     Dates: start: 202203
  7. ERLOTINIB [Concomitant]
     Active Substance: ERLOTINIB
     Indication: Non-small cell lung cancer stage II
     Dosage: UNK
     Route: 065
     Dates: start: 202206
  8. ERLOTINIB [Concomitant]
     Active Substance: ERLOTINIB
     Indication: EGFR gene mutation
  9. PEMETREXED [Concomitant]
     Active Substance: PEMETREXED
     Indication: Non-small cell lung cancer stage II
     Dosage: UNK
     Route: 065
     Dates: start: 202207
  10. PEMETREXED [Concomitant]
     Active Substance: PEMETREXED
     Indication: EGFR gene mutation
  11. CARBOPLATIN [Concomitant]
     Active Substance: CARBOPLATIN
     Indication: Non-small cell lung cancer stage II
     Dosage: UNK
     Route: 065
     Dates: start: 202207
  12. CARBOPLATIN [Concomitant]
     Active Substance: CARBOPLATIN
     Indication: EGFR gene mutation
  13. CETUXIMAB [Concomitant]
     Active Substance: CETUXIMAB
     Indication: Non-small cell lung cancer stage II
     Dosage: 150 MILLIGRAM/SQ. METER, Q2WK
     Route: 065
  14. CETUXIMAB [Concomitant]
     Active Substance: CETUXIMAB
     Indication: EGFR gene mutation
  15. DABRAFENIB [Concomitant]
     Active Substance: DABRAFENIB
     Indication: Non-small cell lung cancer stage II
     Dosage: 75 MILLIGRAM, BID
     Route: 065
  16. DABRAFENIB [Concomitant]
     Active Substance: DABRAFENIB
     Indication: EGFR gene mutation
  17. TRAMETINIB [Concomitant]
     Active Substance: TRAMETINIB
     Indication: Non-small cell lung cancer stage II
     Dosage: 2 MILLIGRAM, QD
     Route: 065
  18. TRAMETINIB [Concomitant]
     Active Substance: TRAMETINIB
     Indication: EGFR gene mutation

REACTIONS (3)
  - Myocardial infarction [Fatal]
  - Non-small cell lung cancer metastatic [Unknown]
  - Therapy non-responder [Unknown]
